FAERS Safety Report 5042300-0 (Version None)
Quarter: 2006Q2

REPORT INFORMATION
  Report Type: 
  Country: None (occurrence: None)
  Receive Date: 20060627
  Receipt Date: 20060612
  Transmission Date: 20061013
  Serious: Yes (Hospitalization)
  Sender: FDA-Public Use
  Company Number: US017778

PATIENT
  Sex: Male

DRUGS (2)
  1. PROVIGIL [Suspect]
     Indication: NARCOLEPSY
     Dosage: 200 MG QAM ORAL
     Route: 048
     Dates: start: 20030101, end: 20050101
  2. PROVIGIL [Suspect]
     Indication: NARCOLEPSY
     Dosage: 100 MG PRN ORAL
     Route: 048
     Dates: start: 20050101, end: 20060101

REACTIONS (8)
  - ABNORMAL DREAMS [None]
  - DRUG WITHDRAWAL SYNDROME [None]
  - ECONOMIC PROBLEM [None]
  - EYE DISORDER [None]
  - MUSCLE TWITCHING [None]
  - SLEEP TERROR [None]
  - SLUGGISHNESS [None]
  - SOMNOLENCE [None]
